FAERS Safety Report 9913423 (Version 2)
Quarter: 2014Q2

REPORT INFORMATION
  Report Type: Spontaneous
  Country: US (occurrence: US)
  Receive Date: 20140220
  Receipt Date: 20140523
  Transmission Date: 20141212
  Serious: Yes (Other)
  Sender: FDA-Public Use
  Company Number: US-ASTELLAS-2014US001650

PATIENT
  Age: 57 Year
  Sex: Male

DRUGS (4)
  1. PROGRAF [Suspect]
     Indication: LIVER TRANSPLANT
     Dosage: 2 MG EVERY MORNING, 1 MG EVERY NIGHT
     Route: 048
     Dates: start: 200010
  2. METFORMIN [Concomitant]
     Indication: PRODUCT USED FOR UNKNOWN INDICATION
     Route: 048
  3. FLUOCINONIDE [Concomitant]
     Indication: PRODUCT USED FOR UNKNOWN INDICATION
     Dosage: UNK, UNKNOWN FREQ.
     Route: 061
  4. DHEA [Concomitant]
     Indication: PRODUCT USED FOR UNKNOWN INDICATION
     Route: 048

REACTIONS (1)
  - Parkinson^s disease [Not Recovered/Not Resolved]
